FAERS Safety Report 8505540-1 (Version None)
Quarter: 2012Q3

REPORT INFORMATION
  Report Type: 
  Country: None (occurrence: None)
  Receive Date: 20120712
  Receipt Date: 20120703
  Transmission Date: 20120928
  Serious: Yes (Hospitalization)
  Sender: FDA-Public Use
  Company Number: US-ELI_LILLY_AND_COMPANY-US201204001107

PATIENT
  Sex: Female

DRUGS (8)
  1. FORTEO [Suspect]
     Indication: OSTEOPOROSIS
     Dosage: 20 UG, QD
     Route: 065
     Dates: start: 20120101
  2. SPIRONOLACTONE [Concomitant]
  3. COUMADIN [Concomitant]
  4. LORAZEPAM [Concomitant]
  5. CARDIZEM [Concomitant]
  6. LOPRESSOR [Concomitant]
  7. NEXIUM [Concomitant]
  8. SYNTHROID [Concomitant]

REACTIONS (3)
  - THROMBOSIS IN DEVICE [None]
  - DYSPNOEA [None]
  - BLOOD CALCIUM INCREASED [None]
